FAERS Safety Report 9701247 (Version 2)
Quarter: 2013Q4

REPORT INFORMATION
  Report Type: Spontaneous
  Country: US (occurrence: US)
  Receive Date: 20131121
  Receipt Date: 20131121
  Transmission Date: 20140711
  Serious: No
  Sender: FDA-Public Use
  Company Number: US-GILEAD-2008-0016012

PATIENT
  Sex: Female

DRUGS (3)
  1. LETAIRIS [Suspect]
     Indication: PULMONARY HYPERTENSION
     Route: 048
  2. COUMADIN [Concomitant]
  3. REVATIO [Concomitant]

REACTIONS (2)
  - Dyspnoea [Recovered/Resolved]
  - Oedema [Recovered/Resolved]
